FAERS Safety Report 24595339 (Version 1)
Quarter: 2024Q4

REPORT INFORMATION
  Report Type: Spontaneous
  Country: GB (occurrence: GB)
  Receive Date: 20241109
  Receipt Date: 20241109
  Transmission Date: 20250115
  Serious: Yes (Other)
  Sender: TEVA
  Company Number: None

PATIENT

DRUGS (14)
  1. MONTELUKAST [Suspect]
     Active Substance: MONTELUKAST
     Route: 065
  2. UPADACITINIB [Concomitant]
     Active Substance: UPADACITINIB
     Dates: start: 20240701, end: 20240924
  3. COLESEVELAM [Concomitant]
     Active Substance: COLESEVELAM
  4. FEXOFENADINE [Concomitant]
     Active Substance: FEXOFENADINE HYDROCHLORIDE
  5. PREDNISOLONE [Concomitant]
     Active Substance: PREDNISOLONE
  6. OMEPRAZOLE [Concomitant]
     Active Substance: OMEPRAZOLE
  7. QUININE [Concomitant]
     Active Substance: QUININE
  8. FERROUS FUMARATE [Concomitant]
     Active Substance: FERROUS FUMARATE
  9. HYDROXYCHLOROQUINE [Concomitant]
     Active Substance: HYDROXYCHLOROQUINE
  10. CALCIUM CARBONATE\CHOLECALCIFEROL [Concomitant]
     Active Substance: CALCIUM CARBONATE\CHOLECALCIFEROL
  11. BUTYLSCOPOLAMINE BROMIDE [Concomitant]
     Active Substance: BUTYLSCOPOLAMINE BROMIDE
  12. FOLIC ACID [Concomitant]
     Active Substance: FOLIC ACID
  13. ACETAMINOPHEN [Concomitant]
     Active Substance: ACETAMINOPHEN
  14. OMALIZUMAB [Concomitant]
     Active Substance: OMALIZUMAB

REACTIONS (3)
  - Depressed mood [Not Recovered/Not Resolved]
  - Jealous delusion [Not Recovered/Not Resolved]
  - Abnormal dreams [Not Recovered/Not Resolved]
